FAERS Safety Report 10466399 (Version 1)
Quarter: 2014Q3

REPORT INFORMATION
  Report Type: Spontaneous
  Country: US (occurrence: None)
  Receive Date: 20140919
  Receipt Date: 20140919
  Transmission Date: 20150326
  Serious: No
  Sender: FDA-Public Use
  Company Number: None

PATIENT
  Age: 37 Year
  Sex: Female
  Weight: 72.58 kg

DRUGS (1)
  1. CIPRO [Suspect]
     Active Substance: CIPROFLOXACIN HYDROCHLORIDE
     Indication: SURGERY
     Dosage: INTRAVENOUS, SURGERY, INTO A VEIN
     Route: 042
     Dates: start: 20140529, end: 20140529

REACTIONS (7)
  - Anxiety [None]
  - Pain [None]
  - Palpitations [None]
  - Feeling abnormal [None]
  - Tinnitus [None]
  - Surgery [None]
  - Depression [None]
